FAERS Safety Report 10725007 (Version 2)
Quarter: 2015Q1

REPORT INFORMATION
  Report Type: Spontaneous
  Country: US (occurrence: None)
  Receive Date: 20150116
  Receipt Date: 20150127
  Transmission Date: 20150721
  Serious: Yes (Hospitalization)
  Sender: FDA-Public Use
  Company Number: 2014-US-016526

PATIENT
  Age: 72 Year
  Sex: Male

DRUGS (4)
  1. PRIALT [Suspect]
     Active Substance: ZICONOTIDE ACETATE
     Indication: SPINAL PAIN
     Dosage: UNK, MG, QH, INTRATHECAL
     Route: 037
  2. CODEINE SULFATE. [Suspect]
     Active Substance: CODEINE SULFATE
  3. SALINE [Suspect]
     Active Substance: SODIUM CHLORIDE
  4. METHADONE [Suspect]
     Active Substance: METHADONE HYDROCHLORIDE

REACTIONS (6)
  - Heart rate increased [None]
  - Pain [None]
  - Stress [None]
  - Malaise [None]
  - Anxiety [None]
  - Judgement impaired [None]

NARRATIVE: CASE EVENT DATE: 201411
